FAERS Safety Report 12445315 (Version 1)
Quarter: 2016Q2

REPORT INFORMATION
  Report Type: Other
  Country: None (occurrence: US)
  Receive Date: 20160607
  Receipt Date: 20160607
  Transmission Date: 20160815
  Serious: Yes (Hospitalization)
  Sender: FDA-Public Use
  Company Number: US-GUTHY-RENKER LLC-1053474

PATIENT
  Age: 72 Year
  Sex: Female

DRUGS (1)
  1. IT COSMETICS BYE BYE FOUNDATION SPF 50+ [Suspect]
     Active Substance: TITANIUM DIOXIDE\ZINC OXIDE
     Indication: PROPHYLAXIS AGAINST SOLAR RADIATION
     Route: 061
     Dates: start: 20160415

REACTIONS (7)
  - Heart rate decreased [None]
  - Skin irritation [None]
  - Skin exfoliation [None]
  - Acne [None]
  - Urticaria [Recovering/Resolving]
  - Malaise [None]
  - Pruritus [None]

NARRATIVE: CASE EVENT DATE: 20160415
